FAERS Safety Report 18438444 (Version 4)
Quarter: 2021Q1

REPORT INFORMATION
  Report Type: Spontaneous
  Country: JP (occurrence: JP)
  Receive Date: 20201029
  Receipt Date: 20210128
  Transmission Date: 20210419
  Serious: Yes (Hospitalization, Other)
  Sender: FDA-Public Use
  Company Number: JP-AMGEN-JPNSP2020172862

PATIENT
  Age: 76 Year
  Sex: Female
  Weight: 53 kg

DRUGS (9)
  1. GATIFLO [Concomitant]
     Active Substance: GATIFLOXACIN
     Dosage: 1 UNK, TID (OPTHALMIC SOLUTION)
  2. FML [Concomitant]
     Active Substance: FLUOROMETHOLONE
     Indication: UVEITIS
     Dosage: 1 UNK, TID (OPTHALMIC SOLUTION)
  3. THYRADIN S [Concomitant]
     Active Substance: LEVOTHYROXINE SODIUM
     Indication: HYPOTHYROIDISM
     Dosage: 50 MICROGRAM, QD
     Dates: start: 20131126
  4. PRAVASTATIN [PRAVASTATIN SODIUM] [Concomitant]
     Active Substance: PRAVASTATIN
     Dosage: 5 MILLIGRAM, QD
     Dates: start: 20180928, end: 20181027
  5. EVENITY [Suspect]
     Active Substance: ROMOSOZUMAB-AQQG
     Indication: OSTEOPOROSIS
     Dosage: 210 MILLIGRAM, QMO
     Route: 058
     Dates: start: 202003, end: 202009
  6. AMLODIPINE [AMLODIPINE BESILATE] [Concomitant]
     Active Substance: AMLODIPINE BESYLATE
     Indication: HYPERTENSION
     Dosage: 2.5 MILLIGRAM, QD
     Dates: start: 20140208
  7. PRAVASTATIN [PRAVASTATIN SODIUM] [Concomitant]
     Active Substance: PRAVASTATIN
     Dosage: 5 MILLIGRAM, QD
     Dates: start: 20190218
  8. PRAVASTATIN [PRAVASTATIN SODIUM] [Concomitant]
     Active Substance: PRAVASTATIN
     Indication: DYSLIPIDAEMIA
     Dosage: 5 MILLIGRAM, QD
     Dates: start: 20151020, end: 20151117
  9. ELDECALCITOL [Concomitant]
     Active Substance: ELDECALCITOL
     Dosage: 0.75 MICROGRAM, QD

REACTIONS (1)
  - Atrioventricular block [Recovering/Resolving]

NARRATIVE: CASE EVENT DATE: 20200928
